FAERS Safety Report 26152132 (Version 1)
Quarter: 2025Q4

REPORT INFORMATION
  Report Type: Report from Study
  Country: CO (occurrence: CO)
  Receive Date: 20251214
  Receipt Date: 20251214
  Transmission Date: 20260118
  Serious: Yes (Hospitalization)
  Sender: ABBVIE
  Company Number: CO-JNJFOC-20251208668

PATIENT
  Age: 63 Year
  Sex: Male
  Weight: 82 kg

DRUGS (1)
  1. IMBRUVICA [Suspect]
     Active Substance: IBRUTINIB
     Indication: Mantle cell lymphoma
     Route: 048
     Dates: start: 20241028

REACTIONS (10)
  - Sleep disorder due to general medical condition, insomnia type [Unknown]
  - Dyspnoea [Not Recovered/Not Resolved]
  - Haemorrhage [Recovering/Resolving]
  - Abdominal pain upper [Unknown]
  - Swelling [Unknown]
  - Malaise [Not Recovered/Not Resolved]
  - Skin discolouration [Unknown]
  - Pyrexia [Not Recovered/Not Resolved]
  - Pleural effusion [Unknown]
  - Arrhythmia [Unknown]

NARRATIVE: CASE EVENT DATE: 20251112
